FAERS Safety Report 4459103-8 (Version None)
Quarter: 2004Q3

REPORT INFORMATION
  Report Type: 
  Country: None (occurrence: None)
  Receive Date: 20040920
  Receipt Date: 20040920
  Transmission Date: 20050211
  Serious: No
  Sender: FDA-Public Use
  Company Number: None

PATIENT
  Sex: Female

DRUGS (4)
  1. LEVOXYL [Suspect]
     Indication: HYPOTHYROIDISM
     Dosage: PO
     Route: 048
  2. ESKALITH [Concomitant]
  3. LIPITOR [Concomitant]
  4. RESPERIDOL [Concomitant]

REACTIONS (2)
  - NAUSEA [None]
  - VOMITING [None]
